FAERS Safety Report 4544894-8 (Version None)
Quarter: 2004Q4

REPORT INFORMATION
  Report Type: 
  Country: None (occurrence: None)
  Receive Date: 20041230
  Receipt Date: 20041221
  Transmission Date: 20050328
  Serious: Yes (Hospitalization)
  Sender: FDA-Public Use
  Company Number: 2004-12-1212

PATIENT
  Age: 60 Year
  Sex: Female
  Weight: 56 kg

DRUGS (9)
  1. REBETOL [Suspect]
     Indication: HEPATITIS C
     Dosage: 600 MG ORAL
     Route: 048
     Dates: start: 20041110, end: 20041210
  2. INTRON A [Suspect]
     Indication: HEPATITIS C
     Dosage: 6 MIU QD-TIW INTRAMUSCULAR
     Route: 030
     Dates: start: 20041110, end: 20041119
  3. INTRON A [Suspect]
     Indication: HEPATITIS C
     Dosage: 6 MIU QD-TIW INTRAMUSCULAR
     Route: 030
     Dates: start: 20041110, end: 20041210
  4. INTRON A [Suspect]
     Indication: HEPATITIS C
     Dosage: 6 MIU QD-TIW INTRAMUSCULAR
     Route: 030
     Dates: start: 20041122, end: 20041210
  5. ZOLPIDEM TARTRATE TABLETS [Suspect]
     Indication: INSOMNIA
     Dosage: 10 MG ORAL
     Route: 048
     Dates: start: 20041110, end: 20041210
  6. VOLTAREN [Suspect]
     Indication: PYREXIA
     Dosage: 25 MG PRN ORAL
     Route: 048
     Dates: start: 20041110, end: 20041210
  7. AMLODIPINE BESILATE TABLETS [Concomitant]
  8. URSO 250 [Concomitant]
  9. BIOFERMIN [Concomitant]

REACTIONS (6)
  - ALANINE AMINOTRANSFERASE INCREASED [None]
  - ANOREXIA [None]
  - ASPARTATE AMINOTRANSFERASE INCREASED [None]
  - CONDITION AGGRAVATED [None]
  - HEPATIC FUNCTION ABNORMAL [None]
  - MALAISE [None]
